FAERS Safety Report 13153146 (Version 5)
Quarter: 2017Q3

REPORT INFORMATION
  Report Type: Report from Study
  Country: EC (occurrence: EC)
  Receive Date: 20170126
  Receipt Date: 20170906
  Transmission Date: 20171127
  Serious: Yes (Death, Hospitalization, Other)
  Sender: FDA-Public Use
  Company Number: EC-ROCHE-1882856

PATIENT
  Age: 49 Year
  Sex: Male

DRUGS (4)
  1. VITAMIN K [Concomitant]
     Active Substance: PHYTONADIONE
     Route: 065
  2. MABTHERA [Suspect]
     Active Substance: RITUXIMAB
     Indication: ACUTE LYMPHOCYTIC LEUKAEMIA
     Route: 042
     Dates: start: 20161114
  3. PARACETAMOL [Concomitant]
     Active Substance: ACETAMINOPHEN
     Route: 065
  4. OMEPRAZOL [Concomitant]
     Active Substance: OMEPRAZOLE
     Route: 065

REACTIONS (25)
  - Amnesia [Not Recovered/Not Resolved]
  - Swelling [Unknown]
  - Thrombosis [Not Recovered/Not Resolved]
  - Gingivitis [Not Recovered/Not Resolved]
  - Headache [Recovered/Resolved]
  - Visual impairment [Not Recovered/Not Resolved]
  - Internal haemorrhage [Recovering/Resolving]
  - Bladder obstruction [Recovering/Resolving]
  - Coagulopathy [Recovered/Resolved]
  - Haemorrhage [Recovered/Resolved]
  - Cerebrovascular accident [Not Recovered/Not Resolved]
  - Cerebral disorder [Recovering/Resolving]
  - Off label use [Unknown]
  - Cerebrovascular accident [Not Recovered/Not Resolved]
  - Headache [Recovering/Resolving]
  - Mental disorder [Unknown]
  - Movement disorder [Recovering/Resolving]
  - Eye disorder [Recovering/Resolving]
  - Loss of consciousness [Unknown]
  - Haematuria [Not Recovered/Not Resolved]
  - Pyrexia [Unknown]
  - Cerebrovascular accident [Fatal]
  - Decreased immune responsiveness [Unknown]
  - Cerebral thrombosis [Not Recovered/Not Resolved]
  - Loss of consciousness [Recovered/Resolved]

NARRATIVE: CASE EVENT DATE: 2017
